FAERS Safety Report 13065110 (Version 1)
Quarter: 2016Q4

REPORT INFORMATION
  Report Type: Spontaneous
  Country: US (occurrence: US)
  Receive Date: 20161227
  Receipt Date: 20161227
  Transmission Date: 20170207
  Serious: Yes (Other)
  Sender: FDA-Public Use
  Company Number: None

PATIENT
  Age: 74 Year
  Sex: Female
  Weight: 61.24 kg

DRUGS (19)
  1. HYDROCHLOROTHIAZIDE. [Concomitant]
     Active Substance: HYDROCHLOROTHIAZIDE
  2. LEVOTHYROXINE. [Concomitant]
     Active Substance: LEVOTHYROXINE
  3. OCUVITE [Concomitant]
     Active Substance: VITAMINS
  4. CYMBALTA [Suspect]
     Active Substance: DULOXETINE HYDROCHLORIDE
     Indication: NEURALGIA
     Route: 048
     Dates: start: 20160212, end: 20160812
  5. ASPIRIN. [Concomitant]
     Active Substance: ASPIRIN
  6. VITAMIN D [Concomitant]
     Active Substance: CHOLECALCIFEROL
  7. OMEPRAZOLE. [Concomitant]
     Active Substance: OMEPRAZOLE
  8. TRAZODONE [Concomitant]
     Active Substance: TRAZODONE HYDROCHLORIDE
  9. DEPLIN [Concomitant]
     Active Substance: LEVOMEFOLATE CALCIUM
  10. CYMBALTA [Suspect]
     Active Substance: DULOXETINE HYDROCHLORIDE
     Indication: DEPRESSION
     Route: 048
     Dates: start: 20160212, end: 20160812
  11. ESCITALOPRAM [Concomitant]
     Active Substance: ESCITALOPRAM OXALATE
  12. COQ10 [Concomitant]
     Active Substance: UBIDECARENONE
  13. MEGA VITAMINS [Concomitant]
  14. ZANEX GENERIC [Concomitant]
  15. OMEGA-3 ACIDS [Concomitant]
     Active Substance: OMEGA-3 FATTY ACIDS
  16. GABAPENTIN. [Concomitant]
     Active Substance: GABAPENTIN
  17. SIMVASTATIN. [Concomitant]
     Active Substance: SIMVASTATIN
  18. HYDROMORPHONE [Concomitant]
     Active Substance: HYDROMORPHONE
  19. COLLAGEN [Concomitant]
     Active Substance: COLLAGEN

REACTIONS (2)
  - Urticaria [None]
  - Autoimmune thyroiditis [None]

NARRATIVE: CASE EVENT DATE: 20160411
